FAERS Safety Report 4326006-9 (Version None)
Quarter: 2004Q1

REPORT INFORMATION
  Report Type: 
  Country: None (occurrence: None)
  Receive Date: 20040324
  Receipt Date: 20040304
  Transmission Date: 20041129
  Serious: Yes (Hospitalization)
  Sender: FDA-Public Use
  Company Number: EWC040238192

PATIENT
  Age: 74 Year
  Sex: Male
  Weight: 43 kg

DRUGS (7)
  1. GEMCITABINE HYDROCHLORIDE-IV (GEMCITABINE) [Suspect]
     Indication: NON-SMALL CELL LUNG CANCER
     Dosage: 1400 MG/M2/3 OTHER
     Route: 050
     Dates: start: 20030618, end: 20030814
  2. CISPLATIN [Concomitant]
  3. DEXAN [Concomitant]
  4. KYTRIL [Concomitant]
  5. NOVAMIN (PROCHLORPERAZINE) [Concomitant]
  6. NACID (HYDROTALCITE) [Concomitant]
  7. THEOPHYLLINE [Concomitant]

REACTIONS (12)
  - AORTIC DISORDER [None]
  - CARDIOMEGALY [None]
  - CHEST DISCOMFORT [None]
  - DYSPNOEA [None]
  - ELECTROCARDIOGRAM Q WAVES [None]
  - ELECTROCARDIOGRAM T WAVE INVERSION [None]
  - HEART RATE IRREGULAR [None]
  - ORTHOPNOEA [None]
  - PLEURAL EFFUSION [None]
  - PNEUMONIA [None]
  - SQUAMOUS CELL CARCINOMA [None]
  - SUPRAVENTRICULAR EXTRASYSTOLES [None]
